FAERS Safety Report 5318148-6 (Version None)
Quarter: 2007Q2

REPORT INFORMATION
  Report Type: 
  Country: None (occurrence: None)
  Receive Date: 20070507
  Receipt Date: 20070424
  Transmission Date: 20071010
  Serious: Yes (Hospitalization)
  Sender: FDA-Public Use
  Company Number: JP-ROCHE-491639

PATIENT
  Age: 7 Year
  Sex: Male

DRUGS (4)
  1. TAMIFLU [Suspect]
     Dosage: FORM: DRY SYRUP.
     Route: 048
     Dates: start: 20070326, end: 20070326
  2. TAMIFLU [Suspect]
     Dosage: DOSE INCREASED.
     Route: 048
     Dates: start: 20070327, end: 20070330
  3. TAMIFLU [Suspect]
     Dosage: DOSE DECREASED.
     Route: 048
     Dates: start: 20070331, end: 20070331
  4. CLARITHROMYCIN [Concomitant]
     Route: 048
     Dates: start: 20070326, end: 20070331

REACTIONS (1)
  - DELIRIUM [None]
